FAERS Safety Report 14673056 (Version 1)
Quarter: 2018Q1

REPORT INFORMATION
  Report Type: Spontaneous
  Country: US (occurrence: US)
  Receive Date: 20180323
  Receipt Date: 20180323
  Transmission Date: 20180509
  Serious: Yes (Life-Threatening, Hospitalization)
  Sender: FDA-Public Use
  Company Number: US-ELI_LILLY_AND_COMPANY-US201803008429

PATIENT
  Age: 59 Year
  Sex: Female

DRUGS (1)
  1. FORTEO [Suspect]
     Active Substance: TERIPARATIDE
     Indication: PRODUCT USED FOR UNKNOWN INDICATION
     Dosage: UNK, UNKNOWN
     Route: 065

REACTIONS (11)
  - Enteritis [Recovering/Resolving]
  - Pseudomonas infection [Unknown]
  - Citrobacter infection [Unknown]
  - Malnutrition [Unknown]
  - Hypotension [Unknown]
  - Pancreatic duct stenosis [Unknown]
  - Urinary tract infection [Recovering/Resolving]
  - Respiratory failure [Recovering/Resolving]
  - Colitis [Recovering/Resolving]
  - Atrial fibrillation [Unknown]
  - Pneumonia [Unknown]

NARRATIVE: CASE EVENT DATE: 20180222
